FAERS Safety Report 9689598 (Version 2)
Quarter: 2013Q4

REPORT INFORMATION
  Report Type: Spontaneous
  Country: DE (occurrence: DE)
  Receive Date: 20131115
  Receipt Date: 20131115
  Transmission Date: 20140711
  Serious: Yes (Hospitalization)
  Sender: FDA-Public Use
  Company Number: DE-BIOGENIDEC-2013BI093598

PATIENT
  Age: 52 Year
  Sex: Female

DRUGS (2)
  1. AVONEX [Suspect]
     Indication: MULTIPLE SCLEROSIS
     Route: 030
     Dates: start: 20121101
  2. NOVAMINSULFON [Concomitant]
     Indication: PROPHYLAXIS
     Route: 048
     Dates: start: 20121101

REACTIONS (2)
  - Craniocerebral injury [Not Recovered/Not Resolved]
  - Road traffic accident [Recovered/Resolved]
